FAERS Safety Report 8790455 (Version 1)
Quarter: 2012Q4

REPORT INFORMATION
  Report Type: Spontaneous
  Country: US (occurrence: None)
  Receive Date: 20120911
  Receipt Date: 20120911
  Transmission Date: 20130627
  Serious: No
  Sender: FDA-Public Use
  Company Number: None

PATIENT
  Age: 73 Year
  Sex: Female
  Weight: 122.02 kg

DRUGS (1)
  1. ANASTROZOLE [Suspect]
     Indication: BREAST CANCER
     Dates: start: 20120207, end: 20120804

REACTIONS (10)
  - Oesophageal stenosis [None]
  - Foreign body [None]
  - Foreign body [None]
  - Oesophageal spasm [None]
  - Chest pain [None]
  - Throat tightness [None]
  - Muscle tightness [None]
  - Wheezing [None]
  - Dysphagia [None]
  - Dyspnoea [None]
